FAERS Safety Report 6935850-0 (Version None)
Quarter: 2010Q3

REPORT INFORMATION
  Report Type: 
  Country: None (occurrence: None)
  Receive Date: 20100816
  Receipt Date: 20090714
  Transmission Date: 20110219
  Serious: No
  Sender: FDA-Public Use
  Company Number: 2009-00382

PATIENT
  Age: 61 Year
  Sex: Male
  Weight: 95.2554 kg

DRUGS (5)
  1. ZICAM COLD REMEDY GEL SWABS [Suspect]
     Dosage: SPORADIC, LENGTH OF COLD
     Dates: start: 20000101
  2. METOPROLOL TARTRATE [Concomitant]
  3. ENALAPRIL [Concomitant]
  4. MULTI-VITAMIN [Concomitant]
  5. ASCORBIC ACID [Concomitant]

REACTIONS (2)
  - AGEUSIA [None]
  - ANOSMIA [None]
